FAERS Safety Report 10732468 (Version 5)
Quarter: 2016Q4

REPORT INFORMATION
  Report Type: Spontaneous
  Country: US (occurrence: US)
  Receive Date: 20150123
  Receipt Date: 20161209
  Transmission Date: 20170206
  Serious: No
  Sender: FDA-Public Use
  Company Number: US-PFIZER INC-2015029648

PATIENT
  Age: 64 Year
  Sex: Female
  Weight: 78 kg

DRUGS (31)
  1. LEVOTHYROXINE. [Concomitant]
     Active Substance: LEVOTHYROXINE
     Indication: HYPOTHYROIDISM
     Dosage: 0.175 UG, 1X/DAY
     Route: 048
     Dates: start: 20150309
  2. ALBUTEROL SULFATE. [Concomitant]
     Active Substance: ALBUTEROL SULFATE
     Dosage: 3 ML, AS NEEDED (2.5 MG/3ML)(THREE TIMES A DAY PRN)
     Route: 055
     Dates: start: 20161006
  3. LYRICA [Suspect]
     Active Substance: PREGABALIN
     Indication: FIBROMYALGIA
     Dosage: 150 MG, 2X/DAY
     Route: 048
  4. ASPIRIN. [Concomitant]
     Active Substance: ASPIRIN
     Dosage: 81 MG, 1X/DAY
     Route: 048
  5. ATENOLOL. [Concomitant]
     Active Substance: ATENOLOL
     Indication: TACHYCARDIA
     Dosage: 50 MG, 2X/DAY
     Route: 048
  6. HYDROCODONE-ACETAMINOPHEN [Concomitant]
     Active Substance: ACETAMINOPHEN\HYDROCODONE
     Dosage: UNK UNK, AS NEEDED (HYDROCODONE: 5 MG, ACETAMINOPHEN: 325 MG, Q 6 HRS PRN)
     Route: 048
  7. SYMBICORT [Concomitant]
     Active Substance: BUDESONIDE\FORMOTEROL FUMARATE DIHYDRATE
     Dosage: 2 DF, 2X/DAY (BUDESONIDE 80MCG, FORMOTEROL FUMARATE; 4.5MCG)/ACT
     Route: 055
  8. IPRATROPIUM/ALBUTEROL [Concomitant]
     Active Substance: ALBUTEROL\IPRATROPIUM
     Dosage: 3 ML, 4X/DAY((IPRATROPIUM BROMIDE 0.5 MG/3ML , SALBUTAMOL SULFATE 2.5 MG/3ML)
     Dates: start: 20160601
  9. FLEXERIL [Concomitant]
     Active Substance: CYCLOBENZAPRINE HYDROCHLORIDE
     Dosage: 1 DF, 3X/DAY (10)
     Route: 048
  10. ALBUTEROL SULFATE. [Concomitant]
     Active Substance: ALBUTEROL SULFATE
     Dosage: 3 ML, 3X/DAY ((2.5 MG/3ML) 0.083% NEBULIZATION SOLUTION)
     Route: 055
  11. PREDNISONE. [Concomitant]
     Active Substance: PREDNISONE
     Dosage: 10 MG, 1X/DAY
     Route: 048
     Dates: start: 20160902
  12. AMITRIPTYLINE HCL [Concomitant]
     Active Substance: AMITRIPTYLINE
     Dosage: 10 MG, 1X/DAY (AT BEDTIME)
     Route: 048
  13. LEVOTHYROXINE SODIUM. [Concomitant]
     Active Substance: LEVOTHYROXINE SODIUM
     Dosage: 175 UG, 1X/DAY
     Route: 048
     Dates: start: 20150309
  14. ZYRTEC [Concomitant]
     Active Substance: CETIRIZINE HYDROCHLORIDE
     Dosage: 1 DF, DAILY (10)
     Route: 048
  15. NORCO [Concomitant]
     Active Substance: ACETAMINOPHEN\HYDROCODONE BITARTRATE
     Dosage: UNK, AS NEEDED (HYDROCODONE BITARTRATE 10 MG, PARACETAMOL 325 MG)EVERY 6 HRS
     Route: 048
     Dates: start: 20160902
  16. CHANTIX [Concomitant]
     Active Substance: VARENICLINE TARTRATE
     Dosage: 1 MG, 2X/DAY
     Route: 048
     Dates: start: 20150706
  17. POTASSIUM [Concomitant]
     Active Substance: POTASSIUM
     Dosage: 75 MG, 1X/DAY
     Route: 048
  18. SYMBICORT [Concomitant]
     Active Substance: BUDESONIDE\FORMOTEROL FUMARATE DIHYDRATE
     Dosage: UNK UNK, 2X/DAY (BUDESONIDE 80 MCG/ACT AEROSOL, FORMOTEROL FUMARATE 4.5 MCG/ACT AEROSOL) 2 PUFFS INH
     Route: 055
     Dates: start: 20160601
  19. DIPHTHERIA, TETANUS AND ACELLULAR PERTUSSIS [Concomitant]
     Indication: IMMUNISATION
     Dosage: UNK, SINGLE (DIPHTHERIA VACCINE 2.5 LF, PERTUSSIS VACCINE 18.5 LF, TETANUS VACCINE 5 LF) MCG/0.5
     Dates: start: 20160601, end: 20160601
  20. PROAIR HFA [Concomitant]
     Active Substance: ALBUTEROL SULFATE
     Dosage: UNK, AS NEEDED (108 (90 BASE) MCG/ACT, 2 PUFFS INHALATION EVERY 4 HRS)
  21. PREVNAR 13 [Concomitant]
     Active Substance: PNEUMOCOCCAL 13-VALENT CONJUGATE VACCINE
     Indication: IMMUNISATION
     Dosage: UNK
     Dates: start: 20160601, end: 20160601
  22. CHANTIX [Concomitant]
     Active Substance: VARENICLINE TARTRATE
     Dosage: UNK (0.5 MG X 11 + 1 MG X 42, 1 TAB Q AM X3 DAYS, THE BID X3 DAYS, THEN 2 PO QAM/1 Q PM X3 DAYS)
     Route: 048
     Dates: start: 20150706
  23. LYRICA [Suspect]
     Active Substance: PREGABALIN
     Indication: INTERVERTEBRAL DISC DEGENERATION
     Dosage: 150 MG, 2X/DAY
     Route: 048
     Dates: start: 20150105
  24. LYRICA [Suspect]
     Active Substance: PREGABALIN
     Indication: NEUROPATHY PERIPHERAL
     Dosage: UNK
  25. PREDNISONE. [Concomitant]
     Active Substance: PREDNISONE
     Dosage: 10 MG, DAILY
     Route: 048
     Dates: start: 20151211
  26. FELDENE [Concomitant]
     Active Substance: PIROXICAM
     Indication: INTERVERTEBRAL DISC DEGENERATION
     Dosage: 20 MG, 1X/DAY (WITH FOOD)
     Route: 048
     Dates: start: 20150706
  27. FLONASE [Concomitant]
     Active Substance: FLUTICASONE PROPIONATE
     Indication: HYPERSENSITIVITY
     Dosage: UNK, 1X/DAY (50 MCG/ACT SUSPENSION, 1 SPRAY IN EACH NOSTRIL)
     Route: 045
     Dates: start: 20150518
  28. TENORMIN [Concomitant]
     Active Substance: ATENOLOL
     Dosage: 1 DF, 2X/DAY (50)
     Route: 048
  29. PEPCID AC [Concomitant]
     Active Substance: FAMOTIDINE
     Dosage: 10 MG, AS NEEDED (TWICE A DAY)
     Route: 048
  30. SKELAXIN [Concomitant]
     Active Substance: METAXALONE
     Indication: INTERVERTEBRAL DISC DEGENERATION
     Dosage: 800 MG, 2X/DAY
     Route: 048
     Dates: start: 20160902
  31. NEURONTIN [Concomitant]
     Active Substance: GABAPENTIN
     Dosage: UNK

REACTIONS (1)
  - Pain [Unknown]
